FAERS Safety Report 12978164 (Version 1)
Quarter: 2016Q4

REPORT INFORMATION
  Report Type: Spontaneous
  Country: US (occurrence: US)
  Receive Date: 20161126
  Receipt Date: 20161126
  Transmission Date: 20170207
  Serious: Yes (Death)
  Sender: FDA-Public Use
  Company Number: None

PATIENT
  Age: 36 Year
  Sex: Female
  Weight: 46.8 kg

DRUGS (5)
  1. HYOSCYAMINE SULF [Suspect]
     Active Substance: HYOSCYAMINE SULFATE
     Indication: CHRONIC SINUSITIS
     Dosage: ?          QUANTITY:3 TABLET(S);?
     Route: 048
  2. CLONAZAPAM [Concomitant]
     Active Substance: CLONAZEPAM
  3. DAYSEE [Concomitant]
     Active Substance: ETHINYL ESTRADIOL\LEVONORGESTREL
  4. TIZANIDINE. [Concomitant]
     Active Substance: TIZANIDINE
  5. ZANTAC [Concomitant]
     Active Substance: RANITIDINE HYDROCHLORIDE

REACTIONS (2)
  - Product quality issue [None]
  - Product measured potency issue [None]

NARRATIVE: CASE EVENT DATE: 20160916
